FAERS Safety Report 23596556 (Version 1)
Quarter: 2024Q1

REPORT INFORMATION
  Report Type: Report from Study
  Country: US (occurrence: US)
  Receive Date: 20240305
  Receipt Date: 20240305
  Transmission Date: 20240410
  Serious: Yes (Other)
  Sender: FDA-Public Use
  Company Number: US-TAKEDA-US202029444

PATIENT
  Age: 53 Year
  Sex: Female

DRUGS (2)
  1. HUMAN IMMUNOGLOBULIN G [Suspect]
     Active Substance: HUMAN IMMUNOGLOBULIN G
     Indication: Immunodeficiency common variable
     Dosage: UNK
     Route: 065
  2. HUMAN IMMUNOGLOBULIN G [Suspect]
     Active Substance: HUMAN IMMUNOGLOBULIN G
     Indication: Primary immunodeficiency syndrome

REACTIONS (10)
  - Lower respiratory tract infection [Unknown]
  - Dysphonia [Unknown]
  - Bronchitis [Unknown]
  - Malaise [Unknown]
  - COVID-19 [Unknown]
  - Hypersomnia [Unknown]
  - Ear disorder [Recovering/Resolving]
  - Sinus disorder [Recovering/Resolving]
  - Ear infection [Unknown]
  - Anxiety [Unknown]

NARRATIVE: CASE EVENT DATE: 20200909
